FAERS Safety Report 12674408 (Version 1)
Quarter: 2016Q3

REPORT INFORMATION
  Report Type: Spontaneous
  Country: US (occurrence: US)
  Receive Date: 20160822
  Receipt Date: 20160822
  Transmission Date: 20161109
  Serious: No
  Sender: FDA-Public Use
  Company Number: US-BEH-2015056370

PATIENT
  Sex: Male
  Weight: 81.65 kg

DRUGS (14)
  1. HYDROCODONE-ACETAMINOPHEN [Concomitant]
     Active Substance: ACETAMINOPHEN\HYDROCODONE
  2. SODIUM CHLORIDE. [Concomitant]
     Active Substance: SODIUM CHLORIDE
  3. OXYGEN. [Concomitant]
     Active Substance: OXYGEN
  4. FLOMAX [Concomitant]
     Active Substance: TAMSULOSIN HYDROCHLORIDE
  5. SYMBICORT [Concomitant]
     Active Substance: BUDESONIDE\FORMOTEROL FUMARATE DIHYDRATE
  6. LEVOTHYROXINE. [Concomitant]
     Active Substance: LEVOTHYROXINE
  7. DIPHENHYDRAMINE. [Concomitant]
     Active Substance: DIPHENHYDRAMINE
  8. ZEMAIRA [Suspect]
     Active Substance: .ALPHA.1-PROTEINASE INHIBITOR HUMAN
     Indication: ALPHA-1 ANTI-TRYPSIN DEFICIENCY
     Route: 042
  9. EPIPEN [Concomitant]
     Active Substance: EPINEPHRINE
  10. L-M-X [Concomitant]
  11. PROAIR HFA [Concomitant]
     Active Substance: ALBUTEROL SULFATE
  12. NORMAL SALINE [Concomitant]
     Active Substance: SODIUM CHLORIDE
  13. RANITIDINE. [Concomitant]
     Active Substance: RANITIDINE
  14. LEVOFLOXACIN. [Concomitant]
     Active Substance: LEVOFLOXACIN

REACTIONS (1)
  - Dyspnoea [Unknown]
